FAERS Safety Report 8174911-8 (Version None)
Quarter: 2012Q1

REPORT INFORMATION
  Report Type: 
  Country: None (occurrence: None)
  Receive Date: 20120229
  Receipt Date: 20110713
  Transmission Date: 20120608
  Serious: No
  Sender: FDA-Public Use
  Company Number: US-GLAXOSMITHKLINE-A0936665A

PATIENT
  Age: 43 Year
  Sex: Female

DRUGS (2)
  1. SEASONIQUE [Concomitant]
  2. VALACYCLOVIR [Suspect]
     Indication: GENITAL HERPES
     Dosage: 1G PER DAY
     Route: 048

REACTIONS (3)
  - DRUG INEFFECTIVE [None]
  - FUNGAL INFECTION [None]
  - ILL-DEFINED DISORDER [None]
